FAERS Safety Report 9187316 (Version 1)
Quarter: 2013Q1

REPORT INFORMATION
  Report Type: Report from Study
  Country: CA (occurrence: CA)
  Receive Date: 20130325
  Receipt Date: 20130325
  Transmission Date: 20140127
  Serious: Yes (Hospitalization)
  Sender: FDA-Public Use
  Company Number: CA-JNJFOC-20130309428

PATIENT
  Age: 27 Year
  Sex: Female
  Weight: 84.3 kg

DRUGS (8)
  1. REMICADE [Suspect]
     Indication: CROHN^S DISEASE
     Route: 042
     Dates: start: 20090130
  2. IMURAN [Concomitant]
     Route: 065
  3. VITAMIN  D [Concomitant]
     Route: 065
  4. CALCIUM [Concomitant]
     Route: 065
  5. FISH OIL [Concomitant]
     Route: 065
  6. NUVARING [Concomitant]
     Route: 065
  7. VITAMIN B12 [Concomitant]
     Route: 065
  8. PLAVIX [Concomitant]
     Route: 065

REACTIONS (1)
  - Transient ischaemic attack [Recovering/Resolving]
